FAERS Safety Report 4705514-2 (Version None)
Quarter: 2005Q2

REPORT INFORMATION
  Report Type: 
  Country: None (occurrence: None)
  Receive Date: 20050628
  Receipt Date: 20050614
  Transmission Date: 20051028
  Serious: Yes (Death)
  Sender: FDA-Public Use
  Company Number: CA_050608321

PATIENT
  Age: 16 Year
  Sex: Male
  Weight: 64 kg

DRUGS (3)
  1. PROZAC [Suspect]
     Indication: ANGER
  2. RITALIN [Concomitant]
  3. RISPERIDONE [Concomitant]

REACTIONS (4)
  - ABNORMAL BEHAVIOUR [None]
  - FALL [None]
  - HOMICIDAL IDEATION [None]
  - INJURY [None]
